FAERS Safety Report 7674919-2 (Version None)
Quarter: 2011Q3

REPORT INFORMATION
  Report Type: 
  Country: None (occurrence: None)
  Receive Date: 20110810
  Receipt Date: 20110728
  Transmission Date: 20111222
  Serious: Yes (Hospitalization, Other)
  Sender: FDA-Public Use
  Company Number: CA-ELI_LILLY_AND_COMPANY-CA201107007585

PATIENT
  Sex: Male

DRUGS (14)
  1. FLURAZEPAM [Concomitant]
  2. ZYPREXA [Suspect]
     Dosage: 10 MG, EACH EVENING
  3. PAROXETINE HCL [Concomitant]
  4. ZYPREXA [Suspect]
     Dosage: 5 MG, EACH EVENING
  5. LITHIUM CARBONATE [Concomitant]
  6. DESIPRAMINE HYDROCHLORIDE [Concomitant]
  7. ZYPREXA [Suspect]
     Dosage: 2.5 MG, EACH EVENING
  8. CLONAZEPAM [Concomitant]
  9. ZYPREXA [Suspect]
     Indication: BIPOLAR DISORDER
     Dosage: 15 MG, EACH EVENING
     Dates: start: 20000803
  10. BUPROPION HCL [Concomitant]
  11. TOPIRAMATE [Concomitant]
  12. LEVOTHYROXINE SODIUM [Concomitant]
  13. ZYPREXA [Suspect]
     Dosage: 7.5 MG, EACH EVENING
  14. DIVALPROEX SODIUM [Concomitant]

REACTIONS (12)
  - PNEUMONIA [None]
  - GASTROENTERITIS [None]
  - PARONYCHIA [None]
  - DIABETES MELLITUS [None]
  - PARAESTHESIA [None]
  - BLOOD CHOLESTEROL INCREASED [None]
  - IMPAIRED HEALING [None]
  - RENAL FAILURE [None]
  - HYPOGLYCAEMIA [None]
  - CELLULITIS [None]
  - ALBUMIN URINE PRESENT [None]
  - LOW DENSITY LIPOPROTEIN INCREASED [None]
